FAERS Safety Report 5132140-6 (Version None)
Quarter: 2006Q4

REPORT INFORMATION
  Report Type: 
  Country: None (occurrence: None)
  Receive Date: 20061017
  Receipt Date: 20061006
  Transmission Date: 20070319
  Serious: Yes (Other)
  Sender: FDA-Public Use
  Company Number: 2006US-04036

PATIENT
  Age: 32 Year
  Sex: Female

DRUGS (1)
  1. ISOTRETINOIN [Suspect]
     Dosage: 30 MG, BID
     Dates: start: 20060601, end: 20060701

REACTIONS (3)
  - MENSTRUATION IRREGULAR [None]
  - MYALGIA [None]
  - RECTAL HAEMORRHAGE [None]
